FAERS Safety Report 4543518-3 (Version None)
Quarter: 2005Q1

REPORT INFORMATION
  Report Type: 
  Country: None (occurrence: None)
  Receive Date: 20050103
  Receipt Date: 20041222
  Transmission Date: 20050727
  Serious: Yes (Hospitalization)
  Sender: FDA-Public Use
  Company Number: FR-BRISTOL-MYERS SQUIBB COMPANY-12803862

PATIENT
  Age: 79 Year
  Sex: Female

DRUGS (2)
  1. BRISTOPEN INJ 1 G [Suspect]
     Indication: ENDOCARDITIS STAPHYLOCOCCAL
     Route: 042
     Dates: start: 20041004, end: 20041011
  2. BRISTOPEN CAPS 500 MG [Suspect]
     Indication: ENDOCARDITIS STAPHYLOCOCCAL
     Route: 048
     Dates: start: 20041012, end: 20041105

REACTIONS (2)
  - CYTOLYTIC HEPATITIS [None]
  - HEPATITIS [None]
